FAERS Safety Report 22666864 (Version 2)
Quarter: 2023Q4

REPORT INFORMATION
  Report Type: Report from Study
  Country: US (occurrence: US)
  Receive Date: 20230704
  Receipt Date: 20231003
  Transmission Date: 20240109
  Serious: Yes (Other)
  Sender: FDA-Public Use
  Company Number: US-ABBVIE-5312287

PATIENT
  Sex: Female

DRUGS (1)
  1. HUMIRA [Suspect]
     Active Substance: ADALIMUMAB
     Indication: Psoriasis
     Dosage: STRENGTH: 40 MG
     Route: 058
     Dates: start: 20220502, end: 20230605

REACTIONS (4)
  - Systemic lupus erythematosus [Unknown]
  - Gout [Unknown]
  - Psoriatic arthropathy [Recovering/Resolving]
  - Antimitochondrial antibody positive [Unknown]

NARRATIVE: CASE EVENT DATE: 20230101
